FAERS Safety Report 11134887 (Version 1)
Quarter: 2015Q2

REPORT INFORMATION
  Report Type: Spontaneous
  Country: CA (occurrence: CA)
  Receive Date: 20150525
  Receipt Date: 20150525
  Transmission Date: 20150821
  Serious: Yes (Other)
  Sender: FDA-Public Use
  Company Number: CA-ROCHE-1581759

PATIENT
  Sex: Female

DRUGS (6)
  1. ROSUVASTATIN [Concomitant]
     Active Substance: ROSUVASTATIN
  2. VENLAFAXINE [Concomitant]
     Active Substance: VENLAFAXINE HYDROCHLORIDE
  3. DIOVAN [Concomitant]
     Active Substance: VALSARTAN
  4. RITUXAN [Suspect]
     Active Substance: RITUXIMAB
     Indication: IMMUNE THROMBOCYTOPENIC PURPURA
     Dosage: DOSAGE UNKNOWN
     Route: 042
     Dates: start: 20110520
  5. PREDNISONE. [Concomitant]
     Active Substance: PREDNISONE
  6. OMEPRAZOLE. [Concomitant]
     Active Substance: OMEPRAZOLE

REACTIONS (2)
  - Platelet count decreased [Unknown]
  - Off label use [Unknown]

NARRATIVE: CASE EVENT DATE: 2015
